FAERS Safety Report 10414478 (Version 1)
Quarter: 2014Q3

REPORT INFORMATION
  Report Type: Report from Study
  Country: US (occurrence: US)
  Receive Date: 20140828
  Receipt Date: 20140828
  Transmission Date: 20150326
  Serious: Yes (Hospitalization, Other)
  Sender: FDA-Public Use
  Company Number: US-BIOGENIDEC-2014BI086467

PATIENT
  Sex: Female

DRUGS (1)
  1. AVONEX [Suspect]
     Active Substance: INTERFERON BETA-1A
     Indication: MULTIPLE SCLEROSIS
     Route: 030
     Dates: start: 20030804

REACTIONS (7)
  - Upper limb fracture [Unknown]
  - Hip fracture [Unknown]
  - Ankle fracture [Unknown]
  - Fall [Recovered/Resolved]
  - Wrist fracture [Unknown]
  - Multiple sclerosis [Unknown]
  - Motor dysfunction [Not Recovered/Not Resolved]
